FAERS Safety Report 8851613 (Version 2)
Quarter: 2012Q4

REPORT INFORMATION
  Report Type: 
  Country: US (occurrence: US)
  Receive Date: 20121022
  Receipt Date: 20121115
  Transmission Date: 20130627
  Serious: Yes (Other)
  Sender: FDA-Public Use
  Company Number: US-BIOGENIDEC-2012BI046030

PATIENT
  Sex: Female

DRUGS (3)
  1. AVONEX [Suspect]
     Indication: MULTIPLE SCLEROSIS
     Route: 030
     Dates: start: 20101124
  2. LAMICTAL [Concomitant]
     Indication: CONVULSION
  3. SERTRALINE [Concomitant]
     Indication: DEPRESSION

REACTIONS (1)
  - Aplasia pure red cell [Not Recovered/Not Resolved]
